FAERS Safety Report 6305801-0 (Version None)
Quarter: 2009Q3

REPORT INFORMATION
  Report Type: 
  Country: None (occurrence: None)
  Receive Date: 20090806
  Receipt Date: 20090204
  Transmission Date: 20100115
  Serious: Yes (Hospitalization)
  Sender: FDA-Public Use
  Company Number: 1-17464774

PATIENT
  Age: 25 Year
  Sex: Female

DRUGS (2)
  1. BACTRIM [Suspect]
     Dosage: ORAL
     Route: 048
  2. COPAXONE [Concomitant]

REACTIONS (1)
  - DRUG HYPERSENSITIVITY [None]
